FAERS Safety Report 14907399 (Version 1)
Quarter: 2018Q2

REPORT INFORMATION
  Report Type: Spontaneous
  Country: CZ (occurrence: CZ)
  Receive Date: 20180517
  Receipt Date: 20180517
  Transmission Date: 20180711
  Serious: Yes (Hospitalization, Other)
  Sender: FDA-Public Use
  Company Number: CZ-AUROBINDO-AUR-APL-2018-026026

PATIENT
  Age: 81 Year

DRUGS (1)
  1. METFORMIN [Suspect]
     Active Substance: METFORMIN HYDROCHLORIDE
     Indication: PRODUCT USED FOR UNKNOWN INDICATION
     Dosage: 1000 (UNITS NOS)
     Route: 048

REACTIONS (19)
  - Gastrointestinal disorder [Unknown]
  - Toxicity to various agents [Unknown]
  - Anion gap increased [Unknown]
  - Hypocapnia [Unknown]
  - PO2 decreased [Unknown]
  - Blood creatinine increased [Unknown]
  - Blood chloride decreased [Unknown]
  - Blood potassium increased [Unknown]
  - PCO2 decreased [Unknown]
  - Acute kidney injury [Unknown]
  - Blood calcium decreased [Unknown]
  - Lactic acidosis [Unknown]
  - Base excess decreased [Unknown]
  - Blood pH decreased [Unknown]
  - Hypovolaemia [Unknown]
  - Blood bicarbonate decreased [Unknown]
  - Blood magnesium decreased [Unknown]
  - Blood phosphorus decreased [Unknown]
  - Blood sodium decreased [Unknown]

NARRATIVE: CASE EVENT DATE: 2009
